FAERS Safety Report 21760537 (Version 1)
Quarter: 2022Q4

REPORT INFORMATION
  Report Type: Report from Study
  Country: US (occurrence: None)
  Receive Date: 20221221
  Receipt Date: 20221221
  Transmission Date: 20230112
  Serious: Yes (Hospitalization)
  Sender: FDA-Public Use
  Company Number: US-ROCHE-3240387

PATIENT
  Age: 72 Year
  Sex: Female

DRUGS (2)
  1. OBINUTUZUMAB [Suspect]
     Active Substance: OBINUTUZUMAB
     Indication: Non-Hodgkin^s lymphoma unspecified histology indolent
     Dosage: LAST OBINUTUZUMAB INFUSION WAS GIVEN 17/MAR/2021.
     Route: 042
     Dates: start: 20181130
  2. IBRUTINIB [Suspect]
     Active Substance: IBRUTINIB
     Indication: Non-Hodgkin^s lymphoma unspecified histology indolent
     Dosage: ON 08/DEC/2022 LAST DOSE OF IBRUTINIB.
     Route: 048

REACTIONS (1)
  - Dyspnoea [Unknown]

NARRATIVE: CASE EVENT DATE: 20221208
